FAERS Safety Report 9906896 (Version 2)
Quarter: 2014Q1

REPORT INFORMATION
  Report Type: Spontaneous
  Country: US (occurrence: US)
  Receive Date: 20140218
  Receipt Date: 20140218
  Transmission Date: 20141002
  Serious: No
  Sender: FDA-Public Use
  Company Number: US-GILEAD-2012-0052490

PATIENT
  Sex: Male

DRUGS (5)
  1. LETAIRIS [Suspect]
     Indication: PULMONARY HYPERTENSION
     Dosage: 10 MG, UNK
     Route: 048
     Dates: start: 20110803, end: 20120202
  2. LETAIRIS [Suspect]
     Indication: PORTAL HYPERTENSION
     Dosage: 5 UNK, UNK
     Route: 048
     Dates: start: 20110728
  3. REMODULIN [Concomitant]
  4. NEXIUM                             /01479302/ [Concomitant]
  5. ACTIGALL [Concomitant]

REACTIONS (1)
  - Portal hypertension [Unknown]
